FAERS Safety Report 8553973 (Version 2)
Quarter: 2013Q4

REPORT INFORMATION
  Report Type: Spontaneous
  Country: US (occurrence: US)
  Receive Date: 20120509
  Receipt Date: 20131230
  Transmission Date: 20140711
  Serious: Yes (Death, Hospitalization)
  Sender: FDA-Public Use
  Company Number: US-UCBSA-056578

PATIENT
  Age: 49 Year
  Sex: Female

DRUGS (2)
  1. CIMZIA [Suspect]
     Indication: RHEUMATOID ARTHRITIS
     Dosage: 200 MG MAINTENANCE
  2. ANTIDEPRESSANTS [Concomitant]
     Dosage: UNKNOWN DOSE

REACTIONS (2)
  - Death [Fatal]
  - Depression [Unknown]
